APPROVED DRUG PRODUCT: ROSUVASTATIN CALCIUM
Active Ingredient: ROSUVASTATIN CALCIUM
Strength: EQ 5MG BASE
Dosage Form/Route: TABLET;ORAL
Application: A079169 | Product #001
Applicant: SUN PHARMACEUTICAL INDUSTRIES LTD
Approved: Jul 19, 2016 | RLD: No | RS: No | Type: DISCN